FAERS Safety Report 15269552 (Version 1)
Quarter: 2018Q3

REPORT INFORMATION
  Report Type: Spontaneous
  Country: US (occurrence: US)
  Receive Date: 20180726
  Receipt Date: 20180726
  Transmission Date: 20181010
  Serious: Yes (Hospitalization)
  Sender: FDA-Public Use
  Company Number: None

PATIENT
  Sex: Male
  Weight: 92.99 kg

DRUGS (1)
  1. STIVARGA [Suspect]
     Active Substance: REGORAFENIB
     Indication: COLON CANCER
     Route: 048
     Dates: start: 20180626

REACTIONS (6)
  - Headache [None]
  - Confusional state [None]
  - Dyspnoea [None]
  - Delusion [None]
  - Chronic obstructive pulmonary disease [None]
  - Gait inability [None]
